FAERS Safety Report 6097141-2 (Version None)
Quarter: 2009Q1

REPORT INFORMATION
  Report Type: 
  Country: None (occurrence: None)
  Receive Date: 20090225
  Receipt Date: 20090209
  Transmission Date: 20090719
  Serious: Yes (Other)
  Sender: FDA-Public Use
  Company Number: 09-000136

PATIENT
  Age: 47 Year
  Sex: Female

DRUGS (2)
  1. TACLONEX [Suspect]
     Indication: PSORIASIS
     Dosage: TOPICAL
     Route: 061
     Dates: start: 20081218, end: 20081218
  2. EPIPEN [Concomitant]

REACTIONS (1)
  - PHARYNGEAL OEDEMA [None]
